FAERS Safety Report 6921646-2 (Version None)
Quarter: 2010Q3

REPORT INFORMATION
  Report Type: 
  Country: None (occurrence: None)
  Receive Date: 20100812
  Receipt Date: 20100802
  Transmission Date: 20110219
  Serious: Yes (Death, Hospitalization)
  Sender: FDA-Public Use
  Company Number: US-ELI_LILLY_AND_COMPANY-US201006007797

PATIENT
  Sex: Male

DRUGS (8)
  1. ZYPREXA [Suspect]
     Indication: THINKING ABNORMAL
     Dosage: 5 MG, DAILY (1/D)
  2. DILANTIN [Concomitant]
  3. ISOSORBIDE [Concomitant]
  4. ATENOLOL [Concomitant]
  5. LOVASTAN [Concomitant]
  6. ENALAPRIL [Concomitant]
  7. PLAVIX [Concomitant]
  8. NIFEDIPINE [Concomitant]

REACTIONS (7)
  - ASTHENIA [None]
  - DEHYDRATION [None]
  - DIARRHOEA [None]
  - FALL [None]
  - INFLUENZA [None]
  - OFF LABEL USE [None]
  - PNEUMONIA [None]
